FAERS Safety Report 4377693-0 (Version None)
Quarter: 2004Q2

REPORT INFORMATION
  Report Type: 
  Country: None (occurrence: None)
  Receive Date: 20040608
  Receipt Date: 20040526
  Transmission Date: 20050107
  Serious: Yes (Other)
  Sender: FDA-Public Use
  Company Number: 2004215900DE

PATIENT
  Age: 66 Year
  Sex: Male

DRUGS (1)
  1. ESTRACYT (ESTRAMUSTINE PHOSPHATE) CAPSULE [Suspect]
     Indication: PROSTATE CANCER
     Dosage: 300 MG, TID, ORAL
     Route: 048
     Dates: start: 20040503

REACTIONS (2)
  - COMA [None]
  - HYPOPHOSPHATAEMIA [None]
